FAERS Safety Report 16529119 (Version 1)
Quarter: 2019Q3

REPORT INFORMATION
  Report Type: Spontaneous
  Country: US (occurrence: US)
  Receive Date: 20190703
  Receipt Date: 20190703
  Transmission Date: 20191004
  Serious: Yes (Other)
  Sender: FDA-Public Use
  Company Number: US-ELI_LILLY_AND_COMPANY-US201907000402

PATIENT
  Age: 34 Year
  Sex: Female
  Weight: 47.62 kg

DRUGS (3)
  1. AMBRISENTAN [Suspect]
     Active Substance: AMBRISENTAN
     Indication: PRODUCT USED FOR UNKNOWN INDICATION
     Dosage: UNK, UNKNOWN
     Route: 065
  2. TYVASO [Suspect]
     Active Substance: TREPROSTINIL
     Indication: PRODUCT USED FOR UNKNOWN INDICATION
     Dosage: 3-9 BREATHS, UNKNOWN
     Route: 055
     Dates: start: 20160224
  3. TADALAFIL. [Suspect]
     Active Substance: TADALAFIL
     Indication: PRODUCT USED FOR UNKNOWN INDICATION
     Dosage: UNK, UNKNOWN
     Route: 065

REACTIONS (7)
  - Eczema [Not Recovered/Not Resolved]
  - Palpitations [Unknown]
  - Tachycardia [Unknown]
  - Weight decreased [Unknown]
  - Skin disorder [Not Recovered/Not Resolved]
  - Syncope [Unknown]
  - Abdominal discomfort [Unknown]
